FAERS Safety Report 6411948-0 (Version None)
Quarter: 2009Q4

REPORT INFORMATION
  Report Type: 
  Country: None (occurrence: None)
  Receive Date: 20091023
  Receipt Date: 20091021
  Transmission Date: 20100525
  Serious: Yes (Death)
  Sender: FDA-Public Use
  Company Number: JP-ELI_LILLY_AND_COMPANY-JP200910005311

PATIENT
  Age: 58 Year
  Sex: Male

DRUGS (1)
  1. GEMZAR [Suspect]
     Indication: THYMOMA MALIGNANT
     Route: 042
     Dates: start: 20090116

REACTIONS (2)
  - OFF LABEL USE [None]
  - POLYMYOSITIS [None]
